FAERS Safety Report 7236206-6 (Version None)
Quarter: 2011Q1

REPORT INFORMATION
  Report Type: 
  Country: None (occurrence: None)
  Receive Date: 20110120
  Receipt Date: 20110107
  Transmission Date: 20110831
  Serious: Yes (Death, Other)
  Sender: FDA-Public Use
  Company Number: JP-CELGENEUS-087-21880-11010466

PATIENT
  Sex: Female

DRUGS (4)
  1. LENADEX [Suspect]
     Indication: MULTIPLE MYELOMA
     Route: 048
     Dates: start: 20101203
  2. REVLIMID [Suspect]
     Route: 048
  3. REVLIMID [Suspect]
     Route: 048
  4. REVLIMID [Suspect]
     Indication: MULTIPLE MYELOMA
     Route: 048
     Dates: start: 20101203, end: 20101207

REACTIONS (5)
  - NEUTROPHIL COUNT DECREASED [None]
  - HAEMATEMESIS [None]
  - DYSPNOEA [None]
  - SEPSIS [None]
  - NAUSEA [None]
